FAERS Safety Report 8447749 (Version 5)
Quarter: 2013Q1

REPORT INFORMATION
  Report Type: Spontaneous
  Country: US (occurrence: US)
  Receive Date: 20120308
  Receipt Date: 20130221
  Transmission Date: 20140127
  Serious: Yes (Hospitalization)
  Sender: FDA-Public Use
  Company Number: US-ELI_LILLY_AND_COMPANY-US201202007931

PATIENT
  Age: 51 None
  Sex: Female

DRUGS (17)
  1. FORTEO [Suspect]
     Indication: OSTEOPOROSIS
     Dosage: 20 UG, QD
     Route: 058
     Dates: start: 20110520
  2. FORTEO [Suspect]
     Dosage: 20 UG, QD
     Route: 058
     Dates: end: 201202
  3. FORTEO [Suspect]
     Dosage: 20 UG, QD
     Route: 058
     Dates: start: 20121121
  4. FORTEO [Suspect]
     Dosage: 20 UG, QD
     Route: 058
     Dates: start: 20121126
  5. ADVAIR DISKUS [Concomitant]
  6. CARAFATE [Concomitant]
  7. FAMCICLOVIR [Concomitant]
  8. LEXAPRO [Concomitant]
  9. LYRICA [Concomitant]
     Dosage: UNK
     Dates: end: 20120219
  10. MILK OF MAGNESIA [Concomitant]
  11. MS CONTIN [Concomitant]
  12. XYZAL [Concomitant]
  13. MIRAPEX [Concomitant]
  14. POTASSIUM [Concomitant]
  15. CELEBREX [Concomitant]
     Dosage: UNK
     Dates: end: 20120219
  16. NEXIUM [Concomitant]
     Dosage: UNK
     Dates: end: 20120219
  17. SINGULAR [Concomitant]
     Dosage: UNK
     Dates: end: 20120219

REACTIONS (20)
  - Abdominal pain upper [Not Recovered/Not Resolved]
  - Diarrhoea [Not Recovered/Not Resolved]
  - Vomiting [Not Recovered/Not Resolved]
  - Malaise [Not Recovered/Not Resolved]
  - Nausea [Not Recovered/Not Resolved]
  - Keratitis [Unknown]
  - Eye disorder [Unknown]
  - Eye discharge [Unknown]
  - Visual impairment [Unknown]
  - Fatigue [Not Recovered/Not Resolved]
  - Retching [Not Recovered/Not Resolved]
  - Mental impairment [Unknown]
  - Drug dose omission [Not Recovered/Not Resolved]
  - Anxiety [Unknown]
  - Dizziness [Not Recovered/Not Resolved]
  - Pain [Not Recovered/Not Resolved]
  - Arthralgia [Unknown]
  - Insomnia [Unknown]
  - Asthma [Unknown]
  - Drug administration error [Unknown]
